FAERS Safety Report 19749408 (Version 2)
Quarter: 2021Q3

REPORT INFORMATION
  Report Type: Spontaneous
  Country: PL (occurrence: PL)
  Receive Date: 20210826
  Receipt Date: 20210917
  Transmission Date: 20211014
  Serious: Yes (Death, Other)
  Sender: FDA-Public Use
  Company Number: PL-ASTELLAS-2021US031759

PATIENT
  Age: 60 Year
  Sex: Male

DRUGS (2)
  1. PROGRAF [Suspect]
     Active Substance: TACROLIMUS
     Indication: BONE MARROW TRANSPLANT
     Route: 065
     Dates: start: 20210114, end: 20210115
  2. PROGRAF [Suspect]
     Active Substance: TACROLIMUS
     Indication: BONE MARROW TRANSPLANT
     Dosage: 0.5 MG, UNKNOWN FREQ.
     Route: 065
     Dates: start: 20210114, end: 20210115

REACTIONS (3)
  - Gliomatosis cerebri [Fatal]
  - Product use in unapproved indication [Unknown]
  - Embolism [Fatal]
